FAERS Safety Report 9303988 (Version 1)
Quarter: 2013Q2

REPORT INFORMATION
  Report Type: Spontaneous
  Country: IT (occurrence: IT)
  Receive Date: 20130522
  Receipt Date: 20130522
  Transmission Date: 20140414
  Serious: Yes (Hospitalization)
  Sender: FDA-Public Use
  Company Number: PHHY2013IT049499

PATIENT
  Sex: Female

DRUGS (4)
  1. LORAZEPAM [Suspect]
     Indication: INTENTIONAL SELF-INJURY
     Dosage: 1 MG, DAILY
     Route: 048
     Dates: start: 20130501
  2. LORAZEPAM [Suspect]
     Dosage: 10 MG, TOTAL
     Route: 048
     Dates: start: 20130510, end: 20130510
  3. VERTISERC [Suspect]
     Indication: INTENTIONAL SELF-INJURY
     Dosage: 16 MG, DAILY
     Route: 048
     Dates: start: 20130501
  4. VERTISERC [Suspect]
     Dosage: 10 DF, TOTAL
     Route: 048
     Dates: start: 20130510, end: 20130510

REACTIONS (6)
  - Bradykinesia [Recovered/Resolved]
  - Bradyphrenia [Recovered/Resolved]
  - Sopor [Recovered/Resolved]
  - Confusional state [Recovered/Resolved]
  - Overdose [None]
  - Intentional self-injury [None]
